FAERS Safety Report 4811265-6 (Version None)
Quarter: 2005Q4

REPORT INFORMATION
  Report Type: 
  Country: None (occurrence: None)
  Receive Date: 20051025
  Receipt Date: 20051017
  Transmission Date: 20060501
  Serious: Yes (Death, Hospitalization, Other)
  Sender: FDA-Public Use
  Company Number: 2005-08-0258

PATIENT
  Age: 60 Year
  Sex: Female
  Weight: 100 kg

DRUGS (3)
  1. TEMODAL [Suspect]
     Indication: BRAIN NEOPLASM
     Dosage: 290 MG* ORAL
     Route: 048
     Dates: start: 20050711, end: 20050717
  2. TEMODAL [Suspect]
     Indication: BRAIN NEOPLASM
     Dosage: 290 MG* ORAL
     Route: 048
     Dates: start: 20050725, end: 20050731
  3. DEXAMETHASONE [Concomitant]

REACTIONS (11)
  - BLOOD CREATINE PHOSPHOKINASE MB INCREASED [None]
  - BLOOD CREATININE INCREASED [None]
  - BLOOD UREA INCREASED [None]
  - DEHYDRATION [None]
  - DEPRESSED LEVEL OF CONSCIOUSNESS [None]
  - GENERALISED OEDEMA [None]
  - HEPATIC FAILURE [None]
  - HEPATOTOXICITY [None]
  - OEDEMA PERIPHERAL [None]
  - OLIGURIA [None]
  - RHABDOMYOLYSIS [None]
